FAERS Safety Report 6408088-3 (Version None)
Quarter: 2009Q4

REPORT INFORMATION
  Report Type: 
  Country: None (occurrence: None)
  Receive Date: 20091016
  Receipt Date: 20091001
  Transmission Date: 20100525
  Serious: Yes (Other)
  Sender: FDA-Public Use
  Company Number: MC200900376

PATIENT
  Age: 65 Year
  Sex: Male

DRUGS (1)
  1. CLEVIPREX [Suspect]
     Indication: BLOOD PRESSURE MANAGEMENT
     Dosage: INTRAVENOUS
     Route: 042
     Dates: start: 20090930, end: 20090930

REACTIONS (5)
  - BLOOD PRESSURE DECREASED [None]
  - BRADYCARDIA [None]
  - CAROTID ARTERY OCCLUSION [None]
  - CEREBROVASCULAR ACCIDENT [None]
  - EYE ROLLING [None]
